FAERS Safety Report 21743976 (Version 2)
Quarter: 2023Q1

REPORT INFORMATION
  Report Type: Spontaneous
  Country: DK (occurrence: DK)
  Receive Date: 20221217
  Receipt Date: 20230125
  Transmission Date: 20230418
  Serious: Yes (Death, Life-Threatening, Hospitalization, Other)
  Sender: FDA-Public Use
  Company Number: DK-BAXTER-2022BAX026655

PATIENT
  Age: 3 Week
  Sex: Male
  Weight: 4 kg

DRUGS (3)
  1. DEXTROSE [Suspect]
     Active Substance: DEXTROSE
     Indication: Hypernatraemia
     Dosage: TOTAL OF 50 ML/KG (200 ML) INTRAVENOUS 10% GLUCOSE IN WATER
     Route: 042
  2. SODIUM CHLORIDE [Suspect]
     Active Substance: SODIUM CHLORIDE
     Dosage: 20 ML/KG (80 ML), ANOTHER 20 ML/KG BOLUS, THIRD BOLUS OF 10 ML/KG
     Route: 040
  3. DIAZEPAM [Concomitant]
     Active Substance: DIAZEPAM
     Indication: Seizure
     Route: 042

REACTIONS (8)
  - Product label issue [Fatal]
  - Incorrect dose administered [Unknown]
  - Hypertension [Unknown]
  - Disease recurrence [Unknown]
  - Cardiac contractility decreased [Unknown]
  - Mitral valve incompetence [Unknown]
  - Hyperglycaemia [Unknown]
  - Hypervolaemia [Unknown]
